FAERS Safety Report 16633450 (Version 2)
Quarter: 2020Q3

REPORT INFORMATION
  Report Type: Spontaneous
  Country: GB (occurrence: IT)
  Receive Date: 20190725
  Receipt Date: 20200722
  Transmission Date: 20201102
  Serious: Yes (Other)
  Sender: FDA-Public Use
  Company Number: PHHY2019GB170579

PATIENT
  Age: 18 Year
  Sex: Male

DRUGS (12)
  1. TRAMADOL HYDROCHLORIDE. [Suspect]
     Active Substance: TRAMADOL HYDROCHLORIDE
     Dosage: 30 MG, QD
     Route: 048
  2. MORPHINE SULPHATE [Suspect]
     Active Substance: MORPHINE SULFATE
     Indication: PREOPERATIVE CARE
     Dosage: 10 MG ORAL MORPHINE AT 1450 H
     Route: 048
  3. MORPHINE SULPHATE [Suspect]
     Active Substance: MORPHINE SULFATE
     Dosage: 3 MILLIGRAM IMMEDIATELY POST?OPERATIVELY
     Route: 042
  4. TRAMADOL HYDROCHLORIDE. [Suspect]
     Active Substance: TRAMADOL HYDROCHLORIDE
     Indication: PROCEDURAL PAIN
     Dosage: 100 MG, UNK
     Route: 065
  5. TRAMADOL HYDROCHLORIDE. [Suspect]
     Active Substance: TRAMADOL HYDROCHLORIDE
     Indication: PAIN
     Dosage: 100 MG, PRN
     Route: 065
  6. MORPHINE SULPHATE [Suspect]
     Active Substance: MORPHINE SULFATE
     Indication: PROCEDURAL PAIN
     Dosage: 60 MILLIGRAM
     Route: 048
  7. MORPHINE SULPHATE [Suspect]
     Active Substance: MORPHINE SULFATE
     Indication: PAIN
     Dosage: 15 MG ORAL MORPHINE AT  1555 H THAT DAY
     Route: 048
  8. CODEINE PHOSPHATE [Suspect]
     Active Substance: CODEINE PHOSPHATE
     Indication: PAIN IN EXTREMITY
  9. TRAMADOL HYDROCHLORIDE. [Suspect]
     Active Substance: TRAMADOL HYDROCHLORIDE
     Dosage: 10MG?5MG?5MG PER DAY
     Route: 048
  10. HYDROCORTISONE SODIUM SUCCINATE [Suspect]
     Active Substance: HYDROCORTISONE SODIUM SUCCINATE
     Indication: HYPOPITUITARISM
     Dosage: UNK
     Route: 065
  11. CODEINE PHOSPHATE [Suspect]
     Active Substance: CODEINE PHOSPHATE
     Indication: PAIN
     Dosage: 30 MG, QID
     Route: 065
  12. MORPHINE SULPHATE [Suspect]
     Active Substance: MORPHINE SULFATE
     Dosage: 50 MILLIGRAM
     Route: 048

REACTIONS (1)
  - Adrenal insufficiency [Recovered/Resolved]
